FAERS Safety Report 5093044-0 (Version None)
Quarter: 2006Q3

REPORT INFORMATION
  Report Type: 
  Country: None (occurrence: None)
  Receive Date: 20060728
  Receipt Date: 20060619
  Transmission Date: 20061208
  Serious: Yes (Hospitalization)
  Sender: FDA-Public Use
  Company Number: 254240

PATIENT
  Age: 64 Year
  Sex: Female
  Weight: 53 kg

DRUGS (7)
  1. LEVEMIR FLEXPEN(INSULIN DETERMIR) SOLUTION FOR INJECTION,.0024MOL/L [Suspect]
     Indication: INSULIN-REQUIRING TYPE II DIABETES MELLITUS
     Dosage: SUBCUTANEOUS
     Route: 058
     Dates: start: 20060101
  2. DILANTIN /00017401/ (PHENYTOIN) [Concomitant]
  3. DEPAKOTE [Concomitant]
  4. SYNTHROID [Concomitant]
  5. LASIX [Concomitant]
  6. PREDNISONE TAB [Concomitant]
  7. ASPIRIN /01428701/ (CITRIC ACID, CALCIUM CARBONATE, ACETYLSALICYLIC AC [Concomitant]

REACTIONS (2)
  - HYPERGLYCAEMIA [None]
  - HYPOGLYCAEMIA [None]
